FAERS Safety Report 6016370-7 (Version None)
Quarter: 2008Q4

REPORT INFORMATION
  Report Type: 
  Country: None (occurrence: None)
  Receive Date: 20081222
  Receipt Date: 20081212
  Transmission Date: 20090506
  Serious: Yes (Other)
  Sender: FDA-Public Use
  Company Number: US-PFIZER INC-2008093695

PATIENT
  Sex: Male
  Weight: 100.45 kg

DRUGS (11)
  1. LIPITOR [Suspect]
     Indication: BLOOD CHOLESTEROL INCREASED
     Dosage: 40 MG, 1X/DAY
     Route: 048
     Dates: start: 20081008
  2. LIPITOR [Suspect]
     Dates: start: 20081008, end: 20081114
  3. LISINOPRIL [Concomitant]
     Route: 048
  4. ASPIRIN [Concomitant]
     Route: 048
  5. LEXAPRO [Concomitant]
     Route: 048
  6. AVODART [Concomitant]
     Route: 048
  7. UROXATRAL [Concomitant]
     Route: 048
  8. COENZYME Q10 [Concomitant]
     Route: 048
  9. WARFARIN SODIUM [Concomitant]
     Route: 048
  10. SLOW-MAG [Concomitant]
     Route: 048
  11. DIAZEPAM [Concomitant]
     Route: 048

REACTIONS (3)
  - BONE PAIN [None]
  - GAIT DISTURBANCE [None]
  - PAIN IN EXTREMITY [None]
